FAERS Safety Report 17354390 (Version 1)
Quarter: 2020Q1

REPORT INFORMATION
  Report Type: Spontaneous
  Country: US (occurrence: US)
  Receive Date: 20200130
  Receipt Date: 20200130
  Transmission Date: 20200409
  Serious: No
  Sender: FDA-Public Use
  Company Number: None

PATIENT
  Age: 79 Year
  Sex: Male
  Weight: 89.1 kg

DRUGS (13)
  1. AMLODIPINE [Concomitant]
     Active Substance: AMLODIPINE BESYLATE
  2. BICALUTAMIDE. [Concomitant]
     Active Substance: BICALUTAMIDE
  3. GLIPIZIDE. [Concomitant]
     Active Substance: GLIPIZIDE
  4. LOTREL [Concomitant]
     Active Substance: AMLODIPINE BESYLATE\BENAZEPRIL HYDROCHLORIDE
  5. ABIRATERONE. [Suspect]
     Active Substance: ABIRATERONE ACETATE
     Indication: PROSTATE CANCER
     Route: 048
     Dates: start: 20200106
  6. ASPIRIN. [Concomitant]
     Active Substance: ASPIRIN
  7. CEPHALEXIN. [Concomitant]
     Active Substance: CEPHALEXIN
  8. MVI [Concomitant]
     Active Substance: VITAMINS
  9. OMEGA 3 [Concomitant]
     Active Substance: OMEGA-3 FATTY ACIDS
  10. WARFARIN [Concomitant]
     Active Substance: WARFARIN
  11. BISOPROLOL [Concomitant]
     Active Substance: BISOPROLOL
  12. CALCIUM+VIT D [Concomitant]
  13. TAMSULOSIN [Concomitant]
     Active Substance: TAMSULOSIN

REACTIONS (2)
  - Dry mouth [None]
  - Surgery [None]

NARRATIVE: CASE EVENT DATE: 20200130
